FAERS Safety Report 7461566-0 (Version None)
Quarter: 2011Q2

REPORT INFORMATION
  Report Type: 
  Country: None (occurrence: None)
  Receive Date: 20110428
  Receipt Date: 20110418
  Transmission Date: 20111010
  Serious: Yes (Hospitalization, Other)
  Sender: FDA-Public Use
  Company Number: JPI-P-013427

PATIENT
  Age: 42 Year
  Sex: Male
  Weight: 113.3993 kg

DRUGS (16)
  1. XYREM [Suspect]
     Indication: CATAPLEXY
     Dosage: SEE IMAGE
     Route: 048
     Dates: start: 20110320, end: 20110320
  2. XYREM [Suspect]
     Indication: CATAPLEXY
     Dosage: SEE IMAGE
     Route: 048
     Dates: start: 20100927, end: 20101001
  3. XYREM [Suspect]
     Indication: CATAPLEXY
     Dosage: SEE IMAGE
     Route: 048
     Dates: start: 20110321
  4. XYREM [Suspect]
     Indication: CATAPLEXY
     Dosage: SEE IMAGE
     Route: 048
     Dates: end: 20110101
  5. XYREM [Suspect]
     Indication: CATAPLEXY
     Dosage: SEE IMAGE
     Route: 048
     Dates: start: 20101001
  6. XYREM [Suspect]
     Indication: CATAPLEXY
     Dosage: SEE IMAGE
     Route: 048
     Dates: start: 20110306, end: 20110319
  7. RANITIDINE HYDROCHLORIDE [Concomitant]
  8. ALPRAZOLAM [Concomitant]
  9. PANCRELIPASE [Concomitant]
  10. ACETAMINOPHEN/ASPIRIN/CAFFEINE/SALICYLAMIDE [Concomitant]
  11. LEVOTHYROXINE SODIUM [Concomitant]
  12. FENTANYL [Concomitant]
  13. GABAPENTIN [Concomitant]
  14. CITALOPRAM HYDROBROMIDE [Concomitant]
  15. MODAFINIL [Suspect]
  16. OXYCODONE AND ACETAMINOPHEN [Concomitant]

REACTIONS (6)
  - SCIATICA [None]
  - POOR QUALITY SLEEP [None]
  - CONDITION AGGRAVATED [None]
  - PANCREATITIS [None]
  - WHITE BLOOD CELL COUNT INCREASED [None]
  - CONCUSSION [None]
